FAERS Safety Report 11769932 (Version 2)
Quarter: 2015Q4

REPORT INFORMATION
  Report Type: Spontaneous
  Country: US (occurrence: US)
  Receive Date: 20151123
  Receipt Date: 20151123
  Transmission Date: 20160304
  Serious: No
  Sender: FDA-Public Use
  Company Number: US-PERRIGO-15US005938

PATIENT
  Sex: Male

DRUGS (5)
  1. ANTITHROMBOTIC AGENTS [Concomitant]
     Active Substance: UNSPECIFIED INGREDIENT
     Indication: ANTICOAGULANT THERAPY
     Dosage: UNK
     Route: 065
  2. POLYETHYLENE GLYCOL 3350. [Suspect]
     Active Substance: POLYETHYLENE GLYCOL 3350
     Indication: CONSTIPATION
     Dosage: 17 G, SINGLE
     Route: 048
     Dates: start: 20150608, end: 20150608
  3. DOCUSATE SODIUM. [Suspect]
     Active Substance: DOCUSATE SODIUM
     Indication: CONSTIPATION
     Dosage: 3 TABLETS, SINGLE
     Route: 048
     Dates: start: 20150608, end: 20150608
  4. CARDIAC THERAPY [Concomitant]
     Active Substance: UNSPECIFIED INGREDIENT
     Indication: HEART RATE ABNORMAL
     Dosage: UNK
     Route: 065
  5. LIPID MODIFYING AGENTS [Concomitant]
     Active Substance: UNSPECIFIED INGREDIENT
     Indication: BLOOD CHOLESTEROL INCREASED
     Dosage: UNK
     Route: 065

REACTIONS (1)
  - Frequent bowel movements [Recovered/Resolved]

NARRATIVE: CASE EVENT DATE: 20150609
